FAERS Safety Report 10168125 (Version 1)
Quarter: 2014Q2

REPORT INFORMATION
  Report Type: Spontaneous
  Country: US (occurrence: US)
  Receive Date: 20140512
  Receipt Date: 20140512
  Transmission Date: 20141212
  Serious: Yes (Life-Threatening, Hospitalization)
  Sender: FDA-Public Use
  Company Number: US-MYLANLABS-2014S1010231

PATIENT
  Age: 54 Year
  Sex: Male
  Weight: 95 kg

DRUGS (5)
  1. MINOCYCLINE [Suspect]
     Indication: DERMAL CYST
     Route: 065
  2. ATORVASTATIN [Interacting]
     Dosage: 20MG
     Route: 065
  3. OMEPRAZOLE [Concomitant]
     Dosage: 20MG
     Route: 065
  4. VITAMIN D [Concomitant]
     Route: 065
  5. ASPIRIN [Concomitant]
     Dosage: 81MG
     Route: 065

REACTIONS (9)
  - Autoimmune hepatitis [Recovering/Resolving]
  - Drug interaction [Recovering/Resolving]
  - Chest pain [Unknown]
  - Back pain [Unknown]
  - Hyperhidrosis [Unknown]
  - Pyrexia [Unknown]
  - Dyspnoea [Unknown]
  - Skin discolouration [Unknown]
  - Abdominal distension [Unknown]
